FAERS Safety Report 5379563-8 (Version None)
Quarter: 2007Q3

REPORT INFORMATION
  Report Type: 
  Country: None (occurrence: None)
  Receive Date: 20070703
  Receipt Date: 20070621
  Transmission Date: 20080115
  Serious: Yes (Hospitalization)
  Sender: FDA-Public Use
  Company Number: S07-USA-02690-01

PATIENT
  Age: 16 Year
  Sex: Male
  Weight: 73.9363 kg

DRUGS (7)
  1. CELEXA [Suspect]
     Indication: DEPRESSION
     Dates: start: 20060513, end: 20060530
  2. CELEXA [Suspect]
     Indication: DEPRESSION
     Dates: start: 20040201, end: 20060414
  3. CELEXA [Suspect]
     Indication: DEPRESSION
     Dosage: 40 MG QD PO
     Route: 048
     Dates: start: 20060415, end: 20060512
  4. ZOLOFT [Suspect]
     Indication: DEPRESSION
     Dosage: 25 MG QD PO
     Route: 048
     Dates: start: 20060526, end: 20060529
  5. ZOLOFT [Suspect]
     Indication: DEPRESSION
     Dates: start: 20060530
  6. CLONIDINE [Concomitant]
  7. KLONOPIN [Concomitant]

REACTIONS (6)
  - ANHEDONIA [None]
  - HOMICIDAL IDEATION [None]
  - IRRITABILITY [None]
  - POOR QUALITY SLEEP [None]
  - SUICIDAL IDEATION [None]
  - TIC [None]
